FAERS Safety Report 8409808-9 (Version None)
Quarter: 2012Q2

REPORT INFORMATION
  Report Type: 
  Country: None (occurrence: None)
  Receive Date: 20120605
  Receipt Date: 20120530
  Transmission Date: 20120825
  Serious: No
  Sender: FDA-Public Use
  Company Number: US-PFIZER INC-2012130365

PATIENT
  Sex: Female
  Weight: 70.295 kg

DRUGS (2)
  1. ESTRING [Suspect]
     Indication: VULVOVAGINAL DRYNESS
     Dosage: UNK
     Route: 067
     Dates: start: 20120301
  2. ESTRING [Suspect]
     Indication: VAGINAL INFECTION

REACTIONS (1)
  - VULVOVAGINAL DISCOMFORT [None]
